FAERS Safety Report 25432486 (Version 1)
Quarter: 2025Q2

REPORT INFORMATION
  Report Type: Spontaneous
  Country: GE (occurrence: GE)
  Receive Date: 20250613
  Receipt Date: 20250613
  Transmission Date: 20250717
  Serious: Yes (Other)
  Sender: ROCHE
  Company Number: GE-ROCHE-10000308024

PATIENT
  Age: 73 Year
  Sex: Male

DRUGS (1)
  1. TECENTRIQ [Suspect]
     Active Substance: ATEZOLIZUMAB
     Indication: Lung neoplasm malignant
     Route: 065

REACTIONS (5)
  - Pyrexia [Unknown]
  - Lung abscess [Unknown]
  - Productive cough [Unknown]
  - Psoriasis [Unknown]
  - Infectious pleural effusion [Unknown]
